FAERS Safety Report 8086475 (Version 5)
Quarter: 2014Q1

REPORT INFORMATION
  Report Type: Report from Study
  Country: CA (occurrence: CA)
  Receive Date: 20110811
  Receipt Date: 20140213
  Transmission Date: 20141002
  Serious: Yes (Other)
  Sender: FDA-Public Use
  Company Number: PHHY2011CA70656

PATIENT
  Age: 67 Year
  Sex: Female

DRUGS (7)
  1. ACLASTA [Suspect]
     Indication: OSTEOPOROSIS
     Dosage: 5 MG, UNK
     Route: 042
     Dates: start: 20110725
  2. ACLASTA [Suspect]
     Dosage: UNK UKN, UNK
     Route: 042
     Dates: start: 20121214
  3. CRESTOR [Concomitant]
     Dosage: 20 MG, QD
     Route: 048
  4. RABEPRAZOLE [Concomitant]
     Dosage: 20 MG, QD
  5. SYMBICORT [Concomitant]
     Dosage: 200 UG,
  6. VITAMIN D [Concomitant]
     Dosage: 400 IU, UNK
  7. PARIET [Concomitant]
     Dosage: 20 MG, QD

REACTIONS (14)
  - Deafness [Not Recovered/Not Resolved]
  - Chest pain [Unknown]
  - Chest discomfort [Recovered/Resolved]
  - Bone disorder [Not Recovered/Not Resolved]
  - Fatigue [Unknown]
  - Chills [Unknown]
  - Tremor [Unknown]
  - Dyspnoea [Unknown]
  - Nausea [Unknown]
  - Arthralgia [Recovered/Resolved]
  - Local swelling [Unknown]
  - Joint swelling [Unknown]
  - Insomnia [Recovered/Resolved]
  - Headache [Recovered/Resolved]
